FAERS Safety Report 14032489 (Version 3)
Quarter: 2018Q3

REPORT INFORMATION
  Report Type: Spontaneous
  Country: US (occurrence: US)
  Receive Date: 20171002
  Receipt Date: 20180718
  Transmission Date: 20181010
  Serious: Yes (Other)
  Sender: FDA-Public Use
  Company Number: US-PFIZER INC-2017422107

PATIENT
  Age: 61 Year
  Sex: Female
  Weight: 100.68 kg

DRUGS (1)
  1. XELJANZ XR [Suspect]
     Active Substance: TOFACITINIB CITRATE
     Indication: RHEUMATOID ARTHRITIS
     Dosage: 11 MG, DAILY
     Route: 048
     Dates: start: 201706

REACTIONS (6)
  - Pyrexia [Unknown]
  - Atrial fibrillation [Unknown]
  - Influenza [Unknown]
  - Diarrhoea [Unknown]
  - Pneumonia [Unknown]
  - Sinus disorder [Unknown]
